FAERS Safety Report 23056926 (Version 1)
Quarter: 2023Q4

REPORT INFORMATION
  Report Type: Spontaneous
  Country: US (occurrence: US)
  Receive Date: 20231012
  Receipt Date: 20231012
  Transmission Date: 20240110
  Serious: Yes (Other)
  Sender: FDA-Public Use
  Company Number: US-ELI_LILLY_AND_COMPANY-US202310005538

PATIENT
  Age: 46 Year
  Sex: Female

DRUGS (1)
  1. TADALAFIL [Suspect]
     Active Substance: TADALAFIL
     Indication: Pulmonary vascular disorder
     Dosage: 40 MG, DAILY
     Route: 065

REACTIONS (1)
  - Optic ischaemic neuropathy [Recovered/Resolved]
